FAERS Safety Report 4508706-0 (Version None)
Quarter: 2004Q4

REPORT INFORMATION
  Report Type: 
  Country: None (occurrence: None)
  Receive Date: 20041123
  Receipt Date: 20040611
  Transmission Date: 20050328
  Serious: No
  Sender: FDA-Public Use
  Company Number: US-GLAXOSMITHKLINE-A0514339A

PATIENT
  Age: 23 Year
  Sex: Male

DRUGS (3)
  1. WELLBUTRIN [Suspect]
     Route: 048
     Dates: start: 20040604
  2. VISTARIL [Concomitant]
  3. UNKNOWN MEDICATION [Concomitant]

REACTIONS (1)
  - UNEXPECTED THERAPEUTIC DRUG EFFECT [None]
